FAERS Safety Report 6306145-3 (Version None)
Quarter: 2009Q3

REPORT INFORMATION
  Report Type: 
  Country: None (occurrence: None)
  Receive Date: 20090812
  Receipt Date: 20090810
  Transmission Date: 20100115
  Serious: Yes (Life-Threatening)
  Sender: FDA-Public Use
  Company Number: FR-ASTRAZENECA-2009SE07348

PATIENT
  Age: 13928 Day
  Sex: Female

DRUGS (2)
  1. DIPRIVAN [Suspect]
     Route: 042
     Dates: start: 20090507, end: 20090507
  2. CELOCURINE [Suspect]
     Route: 042
     Dates: start: 20090507, end: 20090507

REACTIONS (1)
  - ANAPHYLACTIC SHOCK [None]
